FAERS Safety Report 4428247-9 (Version None)
Quarter: 2004Q3

REPORT INFORMATION
  Report Type: 
  Country: None (occurrence: None)
  Receive Date: 20040813
  Receipt Date: 20040802
  Transmission Date: 20050211
  Serious: Yes (Other)
  Sender: FDA-Public Use
  Company Number: 2004052198

PATIENT
  Age: 61 Year
  Sex: Female

DRUGS (4)
  1. ZOLOFT [Suspect]
     Indication: HOT FLUSH
     Dosage: 50 MG (50 MG, 1 IN 1 D) ORAL
     Route: 048
     Dates: start: 20031201
  2. TOLTERODINE TARTRATE [Concomitant]
  3. TAMOXIFEN CITRATE [Concomitant]
  4. ALENDRONATE SODIUM [Concomitant]

REACTIONS (3)
  - CARBOHYDRATE ANTIGEN 27.29 INCREASED [None]
  - COUGH [None]
  - PNEUMONIA [None]
